FAERS Safety Report 11324903 (Version 1)
Quarter: 2015Q3

REPORT INFORMATION
  Report Type: Spontaneous
  Country: US (occurrence: US)
  Receive Date: 20150730
  Receipt Date: 20150730
  Transmission Date: 20151125
  Serious: Yes (Other)
  Sender: FDA-Public Use
  Company Number: US-ELI_LILLY_AND_COMPANY-US201507007867

PATIENT
  Age: 54 Year
  Sex: Male

DRUGS (1)
  1. GEMCITABINE HYDROCHLORIDE. [Suspect]
     Active Substance: GEMCITABINE HYDROCHLORIDE
     Indication: PANCREATIC CARCINOMA
     Dosage: 800 MG/M2, CYCLICAL
     Route: 042

REACTIONS (7)
  - Thrombocytopenia [Unknown]
  - Neoplasm progression [Unknown]
  - Biliary tract disorder [Unknown]
  - Neutropenia [Unknown]
  - Ascites [Unknown]
  - Pyrexia [Unknown]
  - Jaundice [Unknown]
